FAERS Safety Report 9266622 (Version 3)
Quarter: 2013Q2

REPORT INFORMATION
  Report Type: Report from Study
  Country: CA (occurrence: CA)
  Receive Date: 20130502
  Receipt Date: 20130514
  Transmission Date: 20140414
  Serious: Yes (Death, Hospitalization)
  Sender: FDA-Public Use
  Company Number: CA-EISAI INC-E7389-03733-SOL-CA

PATIENT
  Age: 59 Year
  Sex: Female
  Weight: 64 kg

DRUGS (11)
  1. HALAVEN [Suspect]
     Indication: PRODUCT USED FOR UNKNOWN INDICATION
     Route: 041
     Dates: start: 20130403, end: 20130410
  2. HYDROMORPHONE CONTIN [Concomitant]
     Route: 065
  3. WELLBUTRIN [Concomitant]
     Route: 048
  4. INSULIN [Concomitant]
     Route: 065
  5. LEVOTHYROXINE [Concomitant]
     Route: 048
  6. SENOKOT [Concomitant]
  7. DIAMICRON [Concomitant]
     Route: 048
  8. GABAPENTIN [Concomitant]
     Route: 048
  9. ELAVIL [Concomitant]
     Route: 048
  10. METFORMIN [Concomitant]
     Route: 048
  11. COUMADIN [Concomitant]
     Route: 048

REACTIONS (11)
  - Death [Fatal]
  - Confusional state [Fatal]
  - Nausea [Fatal]
  - Vomiting [Fatal]
  - Hypophagia [Unknown]
  - Blood pressure increased [Unknown]
  - Asthenia [Unknown]
  - Diarrhoea [Unknown]
  - Hypoaesthesia [Unknown]
  - Cough [Unknown]
  - Fatigue [Unknown]
